FAERS Safety Report 5661280-8 (Version None)
Quarter: 2008Q1

REPORT INFORMATION
  Report Type: 
  Country: None (occurrence: None)
  Receive Date: 20080312
  Receipt Date: 20080306
  Transmission Date: 20080703
  Serious: Yes (Hospitalization)
  Sender: FDA-Public Use
  Company Number: D0056433A

PATIENT
  Age: 67 Year
  Sex: Male
  Weight: 88 kg

DRUGS (5)
  1. AVANDAMET [Suspect]
     Dosage: 502MG UNKNOWN
     Route: 048
     Dates: start: 20051026, end: 20080304
  2. HYDROCHLOROTHIAZIDE + RAMIPRIL [Concomitant]
     Indication: HYPERTENSION
     Dosage: 30MG PER DAY
     Route: 048
     Dates: start: 20060112
  3. RAMIPRIL [Concomitant]
     Indication: HYPERTENSION
     Dosage: 5MG PER DAY
     Route: 048
     Dates: start: 20060112
  4. VIANI [Concomitant]
     Indication: CHRONIC OBSTRUCTIVE PULMONARY DISEASE
     Dosage: 550UG PER DAY
     Route: 055
     Dates: start: 20040624
  5. FENOFIBRAT [Concomitant]
     Dosage: 200MG PER DAY
     Route: 048
     Dates: start: 20051214

REACTIONS (1)
  - CORONARY ARTERY DISEASE [None]
